FAERS Safety Report 22033567 (Version 1)
Quarter: 2023Q1

REPORT INFORMATION
  Report Type: Spontaneous
  Country: US (occurrence: US)
  Receive Date: 20230224
  Receipt Date: 20230224
  Transmission Date: 20230418
  Serious: Yes (Other)
  Sender: FDA-Public Use
  Company Number: US-MYLANLABS-2023M1019895

PATIENT

DRUGS (1)
  1. RANITIDINE [Suspect]
     Active Substance: RANITIDINE
     Indication: Product used for unknown indication
     Dosage: UNK (APPROXIMATELY FROM 01-JAN-2000 TO 01-JAN-2015)
     Route: 065

REACTIONS (1)
  - Bladder cancer [Unknown]
